FAERS Safety Report 7391984-0 (Version None)
Quarter: 2011Q2

REPORT INFORMATION
  Report Type: 
  Country: None (occurrence: None)
  Receive Date: 20110404
  Receipt Date: 20110321
  Transmission Date: 20111010
  Serious: Yes (Hospitalization)
  Sender: FDA-Public Use
  Company Number: PHHY2011FR23853

PATIENT
  Age: 85 Year
  Sex: Female

DRUGS (7)
  1. UVEDOSE [Concomitant]
  2. PREXIDINE [Concomitant]
  3. TAREG [Suspect]
     Indication: HYPERTENSION
     Dosage: 160 MG, DAILY
     Route: 048
     Dates: start: 20110211, end: 20110221
  4. ELISOR [Concomitant]
  5. PREVISCAN [Concomitant]
  6. TENORMIN [Concomitant]
  7. DEBRIDAT [Concomitant]

REACTIONS (10)
  - SKIN LESION [None]
  - MELAENA [None]
  - PURPURA [None]
  - PLATELET COUNT DECREASED [None]
  - ABDOMINAL PAIN [None]
  - CONJUNCTIVAL HAEMORRHAGE [None]
  - BLISTER [None]
  - MALAISE [None]
  - TONGUE HAEMATOMA [None]
  - THROMBOCYTOPENIA [None]
